FAERS Safety Report 5283019-0 (Version None)
Quarter: 2007Q2

REPORT INFORMATION
  Report Type: 
  Country: None (occurrence: None)
  Receive Date: 20070402
  Receipt Date: 20070322
  Transmission Date: 20071010
  Serious: Yes (Hospitalization, Other)
  Sender: FDA-Public Use
  Company Number: US-AMGEN-US196221

PATIENT
  Sex: Female
  Weight: 110.8 kg

DRUGS (12)
  1. ARANESP [Suspect]
     Indication: DIALYSIS
     Route: 058
     Dates: start: 20050128, end: 20061005
  2. DIGITEK [Concomitant]
     Dates: start: 20040521
  3. ALDACTONE [Concomitant]
     Dates: start: 20040521
  4. COLACE [Concomitant]
     Dates: start: 20040521
  5. NIFEREX [Concomitant]
     Dates: start: 20050413
  6. NEPHRO-VITE [Concomitant]
     Dates: start: 20050725
  7. VASOTEC [Concomitant]
     Dates: start: 20060928
  8. POTASSIUM ACETATE [Concomitant]
     Dates: start: 20060928
  9. COUMADIN [Concomitant]
     Dates: start: 20060928
  10. CALCITRIOL [Concomitant]
     Dates: start: 20060929
  11. TUMS [Concomitant]
     Dates: start: 20060929
  12. CORTICOSTEROID NOS [Concomitant]

REACTIONS (5)
  - CALCIPHYLAXIS [None]
  - HOSPITALISATION [None]
  - OEDEMA PERIPHERAL [None]
  - RASH [None]
  - THERAPEUTIC RESPONSE DECREASED [None]
